FAERS Safety Report 21391303 (Version 4)
Quarter: 2023Q1

REPORT INFORMATION
  Report Type: Spontaneous
  Country: US (occurrence: US)
  Receive Date: 20220929
  Receipt Date: 20230117
  Transmission Date: 20230417
  Serious: Yes (Other)
  Sender: FDA-Public Use
  Company Number: US-NOVARTISTESTPH-NVSC2022US220326

PATIENT
  Sex: Female

DRUGS (1)
  1. RECLAST [Suspect]
     Active Substance: ZOLEDRONIC ACID
     Indication: Product used for unknown indication
     Dosage: UNK
     Route: 065
     Dates: start: 20220209

REACTIONS (16)
  - Necrosis [Unknown]
  - Suicidal ideation [Unknown]
  - Lung disorder [Unknown]
  - Gastrointestinal disorder [Unknown]
  - Gastritis [Unknown]
  - Abdominal distension [Unknown]
  - Depression [Unknown]
  - Osteoporosis [Unknown]
  - Tooth discolouration [Unknown]
  - Eating disorder [Unknown]
  - Weight decreased [Unknown]
  - Hyperaesthesia teeth [Unknown]
  - Calcium metabolism disorder [Unknown]
  - Influenza like illness [Unknown]
  - Constipation [Unknown]
  - Dyspnoea [Not Recovered/Not Resolved]
